FAERS Safety Report 6719297-8 (Version None)
Quarter: 2010Q2

REPORT INFORMATION
  Report Type: 
  Country: None (occurrence: None)
  Receive Date: 20100511
  Receipt Date: 20100428
  Transmission Date: 20101027
  Serious: Yes (Other)
  Sender: FDA-Public Use
  Company Number: PHHY2010DK27474

PATIENT
  Sex: Female
  Weight: 62 kg

DRUGS (2)
  1. GLEEVEC [Suspect]
     Indication: CHRONIC MYELOID LEUKAEMIA
     Dosage: 400 MG, QD
     Route: 048
     Dates: start: 20080825, end: 20090306
  2. GINGER [Interacting]

REACTIONS (3)
  - ALANINE AMINOTRANSFERASE INCREASED [None]
  - FOOD INTERACTION [None]
  - HEPATOTOXICITY [None]
